FAERS Safety Report 14818263 (Version 1)
Quarter: 2018Q2

REPORT INFORMATION
  Report Type: Spontaneous
  Country: FR (occurrence: FR)
  Receive Date: 20180427
  Receipt Date: 20180427
  Transmission Date: 20180711
  Serious: Yes (Life-Threatening)
  Sender: FDA-Public Use
  Company Number: FR-TEVA-2018-FR-886972

PATIENT
  Age: 68 Year
  Sex: Female
  Weight: 55 kg

DRUGS (12)
  1. KETOPROFENE [Suspect]
     Active Substance: KETOPROFEN
     Indication: PAIN
     Route: 042
  2. REMIFENTANYL BASE [Suspect]
     Active Substance: REMIFENTANIL
     Indication: INDUCTION OF ANAESTHESIA
     Route: 042
  3. MIDAZOLAM [Suspect]
     Active Substance: MIDAZOLAM HYDROCHLORIDE
     Indication: INDUCTION OF ANAESTHESIA
     Route: 042
  4. EPHEDRINE. [Suspect]
     Active Substance: EPHEDRINE
     Indication: INDUCTION OF ANAESTHESIA
     Route: 042
  5. PARACETAMOL [Suspect]
     Active Substance: ACETAMINOPHEN
     Indication: PAIN
     Route: 042
  6. PROPOFOL. [Suspect]
     Active Substance: PROPOFOL
     Indication: INDUCTION OF ANAESTHESIA
     Route: 042
  7. DEXAMETHASONE. [Suspect]
     Active Substance: DEXAMETHASONE
     Indication: ALLERGY PROPHYLAXIS
     Route: 042
  8. NEFOPAM (CHLORHYDRATE DE) [Suspect]
     Active Substance: NEFOPAM HYDROCHLORIDE
     Indication: PAIN
     Route: 042
  9. TRAMADOL BASE [Suspect]
     Active Substance: TRAMADOL
     Indication: PAIN
     Route: 042
  10. MORPHINE [Suspect]
     Active Substance: MORPHINE
     Indication: INDUCTION OF ANAESTHESIA
     Route: 042
  11. DROPERIDOL. [Suspect]
     Active Substance: DROPERIDOL
     Indication: PROPHYLAXIS OF NAUSEA AND VOMITING
     Route: 042
  12. KETAMINE [Suspect]
     Active Substance: KETAMINE
     Indication: INDUCTION OF ANAESTHESIA
     Route: 042

REACTIONS (1)
  - Pancreatitis necrotising [Recovered/Resolved]
